FAERS Safety Report 20740745 (Version 1)
Quarter: 2022Q2

REPORT INFORMATION
  Report Type: Spontaneous
  Country: DE (occurrence: DE)
  Receive Date: 20220422
  Receipt Date: 20220422
  Transmission Date: 20220721
  Serious: Yes (Death, Other)
  Sender: FDA-Public Use
  Company Number: DE-HQ SPECIALTY-DE-2022INT000109

PATIENT
  Age: 58 Year
  Sex: Male

DRUGS (4)
  1. MEROPENEM [Suspect]
     Active Substance: MEROPENEM
     Indication: Enterobacter infection
     Dosage: UNK
     Route: 065
  2. MEROPENEM [Suspect]
     Active Substance: MEROPENEM
     Indication: Pneumonia klebsiella
  3. COLISTIN [Suspect]
     Active Substance: COLISTIN
     Indication: Enterobacter infection
     Dosage: UNK
     Route: 065
  4. COLISTIN [Suspect]
     Active Substance: COLISTIN
     Indication: Pneumonia klebsiella

REACTIONS (3)
  - Nervous system disorder [Unknown]
  - Sepsis [Fatal]
  - Abdominal infection [Fatal]
